FAERS Safety Report 6395125-8 (Version None)
Quarter: 2009Q4

REPORT INFORMATION
  Report Type: 
  Country: None (occurrence: None)
  Receive Date: 20091009
  Receipt Date: 20091001
  Transmission Date: 20100525
  Serious: Yes (Other)
  Sender: FDA-Public Use
  Company Number: US-ABBOTT-09P-163-0600481-00

PATIENT
  Sex: Female
  Weight: 83.99 kg

DRUGS (4)
  1. HUMIRA [Suspect]
     Indication: CROHN'S DISEASE
     Dates: start: 20091001, end: 20091001
  2. HUMIRA [Suspect]
  3. TYLENOL [Concomitant]
     Indication: SLEEP DISORDER THERAPY
  4. DICYCLOMINE [Concomitant]
     Indication: CROHN'S DISEASE

REACTIONS (5)
  - BLOOD PRESSURE INCREASED [None]
  - DIZZINESS [None]
  - DYSPNOEA [None]
  - INJECTION SITE URTICARIA [None]
  - WHEEZING [None]
